FAERS Safety Report 8463660-4 (Version None)
Quarter: 2012Q2

REPORT INFORMATION
  Report Type: 
  Country: None (occurrence: None)
  Receive Date: 20120625
  Receipt Date: 20120618
  Transmission Date: 20120825
  Serious: Yes (Other)
  Sender: FDA-Public Use
  Company Number: FR-ROCHE-709425

PATIENT

DRUGS (4)
  1. MABTHERA [Suspect]
     Dosage: ON DAY 1 AT ALL SUBSEQUENT CYCLES
     Route: 042
  2. FLUDARABINE PHOSPHATE [Suspect]
     Indication: CHRONIC LYMPHOCYTIC LEUKAEMIA
     Dosage: ON DAY 1-3
     Route: 048
  3. CYCLOPHOSPHAMIDE [Suspect]
     Indication: CHRONIC LYMPHOCYTIC LEUKAEMIA
     Dosage: ON DAY 1-3
     Route: 048
  4. MABTHERA [Suspect]
     Indication: CHRONIC LYMPHOCYTIC LEUKAEMIA
     Dosage: LOADING DOSE ON DAY 0
     Route: 042

REACTIONS (17)
  - BRONCHITIS [None]
  - COLON CANCER METASTATIC [None]
  - CYTOKINE RELEASE SYNDROME [None]
  - TRANSIENT ISCHAEMIC ATTACK [None]
  - FEBRILE NEUTROPENIA [None]
  - RASH GENERALISED [None]
  - GASTRIC ULCER [None]
  - ACUTE PULMONARY OEDEMA [None]
  - MYELODYSPLASTIC SYNDROME [None]
  - TUMOUR LYSIS SYNDROME [None]
  - PLEURAL EFFUSION [None]
  - ERYSIPELAS [None]
  - NEUTROPENIA [None]
  - PNEUMONIA PNEUMOCOCCAL [None]
  - BILE DUCT CANCER [None]
  - APLASIA PURE RED CELL [None]
  - RENAL CANCER [None]
